FAERS Safety Report 5675020-X (Version None)
Quarter: 2008Q1

REPORT INFORMATION
  Report Type: 
  Country: None (occurrence: None)
  Receive Date: 20080320
  Receipt Date: 20080313
  Transmission Date: 20080703
  Serious: Yes (Hospitalization, Other)
  Sender: FDA-Public Use
  Company Number: JP-PFIZER INC-2008021809

PATIENT
  Sex: Male
  Weight: 64 kg

DRUGS (6)
  1. LIPITOR [Suspect]
     Indication: HYPERLIPIDAEMIA
     Route: 048
     Dates: start: 20071215, end: 20080307
  2. NITOROL R [Suspect]
     Indication: ANGINA PECTORIS
     Route: 048
  3. ASPIRIN [Suspect]
     Indication: ANGINA PECTORIS
     Route: 048
  4. PLAVIX [Suspect]
     Indication: ANGINA PECTORIS
     Route: 048
  5. TAKEPRON [Suspect]
     Indication: PROPHYLAXIS AGAINST GASTROINTESTINAL ULCER
     Route: 048
  6. MAINTATE [Suspect]
     Indication: ARRHYTHMIA
     Route: 048

REACTIONS (3)
  - ANGINA PECTORIS [None]
  - CORONARY ARTERY STENOSIS [None]
  - LIVER DISORDER [None]
